FAERS Safety Report 4426641-3 (Version None)
Quarter: 2004Q3

REPORT INFORMATION
  Report Type: 
  Country: None (occurrence: None)
  Receive Date: 20040816
  Receipt Date: 20030829
  Transmission Date: 20050211
  Serious: Yes (Other)
  Sender: FDA-Public Use
  Company Number: PHHO2003CO10933

PATIENT
  Age: 40 Year
  Sex: Female
  Weight: 62 kg

DRUGS (2)
  1. BISACODYL [Concomitant]
     Indication: CONSTIPATION
  2. TEGASEROD VS PLACEBO [Suspect]
     Indication: IRRITABLE BOWEL SYNDROME
     Dosage: 6 MG, BID
     Route: 048
     Dates: start: 20030716, end: 20030812

REACTIONS (3)
  - CAESAREAN SECTION [None]
  - DRUG EXPOSURE DURING PREGNANCY [None]
  - NORMAL NEWBORN [None]
